FAERS Safety Report 9313199 (Version 1)
Quarter: 2013Q2

REPORT INFORMATION
  Report Type: Report from Study
  Country: US (occurrence: US)
  Receive Date: 20130528
  Receipt Date: 20130528
  Transmission Date: 20140414
  Serious: No
  Sender: FDA-Public Use
  Company Number: US-ABBOTT-13P-163-1053648-00

PATIENT
  Age: 62 Year
  Sex: Male
  Weight: 77.18 kg

DRUGS (2)
  1. ANDROGEL [Suspect]
     Indication: BLOOD TESTOSTERONE DECREASED
     Dosage: 60.75 MG DAILY
     Dates: start: 201201, end: 201301
  2. ANDROGEL [Suspect]
     Dates: start: 2003, end: 201201

REACTIONS (1)
  - Fatigue [Recovered/Resolved]
